FAERS Safety Report 20573878 (Version 1)
Quarter: 2022Q1

REPORT INFORMATION
  Report Type: Spontaneous
  Country: FR (occurrence: FR)
  Receive Date: 20220309
  Receipt Date: 20220309
  Transmission Date: 20220423
  Serious: Yes (Disabling, Other)
  Sender: FDA-Public Use
  Company Number: FR-Teikoku Pharma USA-TPU2022-00291

PATIENT
  Sex: Female

DRUGS (4)
  1. LIDOCAINE [Suspect]
     Active Substance: LIDOCAINE
     Indication: Sciatica
     Route: 061
     Dates: start: 202201
  2. LIDOCAINE [Suspect]
     Active Substance: LIDOCAINE
     Indication: Arthralgia
  3. MODERNA COVID-19 VACCINE [Concomitant]
     Active Substance: ELASOMERAN
  4. DOLIPRANE [Concomitant]
     Active Substance: ACETAMINOPHEN

REACTIONS (8)
  - Disability [Unknown]
  - Application site erythema [Unknown]
  - Product use issue [Unknown]
  - Constipation [Unknown]
  - Drug intolerance [Unknown]
  - Suicidal ideation [Unknown]
  - Depression [Unknown]
  - Pain [Unknown]
